FAERS Safety Report 20959789 (Version 1)
Quarter: 2022Q2

REPORT INFORMATION
  Report Type: Report from Study
  Country: CA (occurrence: CA)
  Receive Date: 20220614
  Receipt Date: 20220614
  Transmission Date: 20220721
  Serious: Yes (Hospitalization, Other)
  Sender: FDA-Public Use
  Company Number: CA-BRISTOL-MYERS SQUIBB COMPANY-2022-055451

PATIENT
  Age: 60 Year
  Sex: Male
  Weight: 108 kg

DRUGS (7)
  1. ELIQUIS [Suspect]
     Active Substance: APIXABAN
     Indication: Anticoagulant therapy
  2. SILIQ [Concomitant]
     Active Substance: BRODALUMAB
     Indication: Psoriasis
     Dosage: 2 SINGLE USE PREFILLED SYRINGES
     Route: 058
  3. SILIQ [Concomitant]
     Active Substance: BRODALUMAB
     Dosage: 2 SINGLE USE PREFILLED SYRINGES
     Route: 058
  4. SILIQ [Concomitant]
     Active Substance: BRODALUMAB
     Dosage: 2 SINGLE USE PREFILLED SYRINGES
     Route: 058
  5. SILIQ [Concomitant]
     Active Substance: BRODALUMAB
     Dosage: 2 SINGLE USE PREFILLED SYRINGES
     Route: 058
  6. SILIQ [Concomitant]
     Active Substance: BRODALUMAB
     Dosage: 2 SINGLE USE PREFILLED SYRINGES
     Route: 058
  7. SILIQ [Concomitant]
     Active Substance: BRODALUMAB
     Dosage: 2 SINGLE USE PREFILLED SYRINGES
     Route: 058

REACTIONS (9)
  - Arthralgia [Recovered/Resolved]
  - Blood pressure abnormal [Recovered/Resolved]
  - Dizziness [Recovered/Resolved]
  - Dyspnoea [Recovered/Resolved]
  - Headache [Recovered/Resolved]
  - Palpitations [Recovered/Resolved]
  - Pulmonary oedema [Recovered/Resolved]
  - Skin ulcer [Recovered/Resolved]
  - Hospitalisation [Unknown]
